FAERS Safety Report 4903425-0 (Version None)
Quarter: 2006Q1

REPORT INFORMATION
  Report Type: 
  Country: None (occurrence: None)
  Receive Date: 20060203
  Receipt Date: 20060124
  Transmission Date: 20060701
  Serious: Yes (Hospitalization, Other)
  Sender: FDA-Public Use
  Company Number: 2005168356

PATIENT
  Sex: Female
  Weight: 56 kg

DRUGS (1)
  1. ZOLOFT [Suspect]
     Indication: ILL-DEFINED DISORDER
     Dosage: UNK, ORAL
     Route: 048
     Dates: start: 20050101, end: 20050330

REACTIONS (6)
  - CAESAREAN SECTION [None]
  - DRUG EXPOSURE DURING PREGNANCY [None]
  - HELLP SYNDROME [None]
  - PRE-ECLAMPSIA [None]
  - PREMATURE BABY [None]
  - SMALL FOR DATES BABY [None]
